FAERS Safety Report 9550531 (Version 2)
Quarter: 2016Q1

REPORT INFORMATION
  Report Type: Report from Study
  Country: US (occurrence: US)
  Receive Date: 20130924
  Receipt Date: 20160308
  Transmission Date: 20160526
  Serious: Yes (Other)
  Sender: FDA-Public Use
  Company Number: US-SANOFI-AVENTIS-2013SA029334

PATIENT
  Age: 51 Year
  Sex: Female
  Weight: 69.85 kg

DRUGS (8)
  1. AUBAGIO [Suspect]
     Active Substance: TERIFLUNOMIDE
     Indication: MULTIPLE SCLEROSIS
     Route: 048
     Dates: start: 20130313
  2. BUPROPION. [Concomitant]
     Active Substance: BUPROPION
     Indication: MULTIPLE SCLEROSIS
  3. BUPROPION. [Concomitant]
     Active Substance: BUPROPION
     Indication: MEMORY IMPAIRMENT
  4. ASPIRIN. [Concomitant]
     Active Substance: ASPIRIN
  5. FESOTERODINE [Concomitant]
     Active Substance: FESOTERODINE
     Indication: INCONTINENCE
     Dates: start: 201110
  6. ARICEPT [Concomitant]
     Active Substance: DONEPEZIL HYDROCHLORIDE
     Indication: MEMORY IMPAIRMENT
  7. ESTRADIOL. [Concomitant]
     Active Substance: ESTRADIOL
     Indication: HYSTERECTOMY
     Dates: start: 2005
  8. DONEPEZIL. [Concomitant]
     Active Substance: DONEPEZIL
     Indication: MEMORY IMPAIRMENT
     Dates: start: 201301

REACTIONS (10)
  - Diarrhoea [Not Recovered/Not Resolved]
  - Immunodeficiency [Unknown]
  - Fatigue [Not Recovered/Not Resolved]
  - Paraesthesia [Not Recovered/Not Resolved]
  - Diarrhoea [Recovered/Resolved]
  - Sleep disorder [Not Recovered/Not Resolved]
  - Headache [Recovered/Resolved]
  - Influenza [Unknown]
  - Viral infection [Unknown]
  - Nausea [Recovered/Resolved]

NARRATIVE: CASE EVENT DATE: 201303
